FAERS Safety Report 12524465 (Version 2)
Quarter: 2016Q3

REPORT INFORMATION
  Report Type: Report from Study
  Country: US (occurrence: US)
  Receive Date: 20160704
  Receipt Date: 20160719
  Transmission Date: 20161109
  Serious: Yes (Hospitalization, Other)
  Sender: FDA-Public Use
  Company Number: PHEH2016US016322

PATIENT
  Age: 47 Year
  Sex: Female

DRUGS (2)
  1. COSENTYX [Suspect]
     Active Substance: SECUKINUMAB
     Indication: PSORIASIS
     Dosage: 300 MG, QW
     Route: 050
     Dates: start: 20160601
  2. COSENTYX [Suspect]
     Active Substance: SECUKINUMAB
     Indication: PSORIATIC ARTHROPATHY

REACTIONS (7)
  - Chest pain [Recovering/Resolving]
  - Skin discolouration [Unknown]
  - Blood potassium decreased [Unknown]
  - Injection site pain [Recovering/Resolving]
  - Nasopharyngitis [Recovering/Resolving]
  - Myocardial infarction [Unknown]
  - Hypokalaemic syndrome [Recovering/Resolving]

NARRATIVE: CASE EVENT DATE: 20160701
